FAERS Safety Report 20585019 (Version 2)
Quarter: 2022Q1

REPORT INFORMATION
  Report Type: Report from Study
  Country: US (occurrence: US)
  Receive Date: 20220311
  Receipt Date: 20220321
  Transmission Date: 20220424
  Serious: Yes (Other)
  Sender: FDA-Public Use
  Company Number: US-PFIZER INC-202200372968

PATIENT
  Age: 44 Year
  Sex: Male

DRUGS (2)
  1. CELEBREX [Suspect]
     Active Substance: CELECOXIB
     Dosage: UNK
  2. CELECOXIB [Suspect]
     Active Substance: CELECOXIB

REACTIONS (3)
  - Dystonia [Unknown]
  - Drug intolerance [Unknown]
  - Drug hypersensitivity [Unknown]
